FAERS Safety Report 10620032 (Version 4)
Quarter: 2015Q1

REPORT INFORMATION
  Report Type: Report from Study
  Country: CN (occurrence: CN)
  Receive Date: 20141202
  Receipt Date: 20150108
  Transmission Date: 20150720
  Serious: Yes (Death, Hospitalization)
  Sender: FDA-Public Use
  Company Number: CN-BAYER-2014-143180

PATIENT
  Age: 80 Year
  Sex: Male
  Weight: 67 kg

DRUGS (27)
  1. RADIUM-223 DICHLORIDE [Suspect]
     Active Substance: RADIUM RA-223 DICHLORIDE
     Indication: PROSTATE CANCER STAGE IV
     Dosage: 3450 KBQ
     Route: 042
     Dates: start: 20140910, end: 20140910
  2. GLYCERIN [GLYCEROL] [Concomitant]
     Indication: CONSTIPATION
     Dosage: 20 ML, PRN
     Route: 054
     Dates: start: 20140916
  3. MORPHINE HYDROCHLORIDE [Concomitant]
     Active Substance: MORPHINE HYDROCHLORIDE
     Indication: BONE PAIN
     Dosage: 10 MG, QD
     Route: 030
     Dates: start: 20140928, end: 20140928
  4. MORPHINE HYDROCHLORIDE [Concomitant]
     Active Substance: MORPHINE HYDROCHLORIDE
     Indication: BONE PAIN
     Dosage: 10 MG, QD
     Route: 030
     Dates: start: 20140929, end: 20140929
  5. METOCLOPRAMIDE. [Concomitant]
     Active Substance: METOCLOPRAMIDE
     Indication: ANTIEMETIC SUPPORTIVE CARE
     Dosage: 10 MG, QD
     Route: 030
     Dates: start: 20141007, end: 20141007
  6. MORPHINE HYDROCHLORIDE [Concomitant]
     Active Substance: MORPHINE HYDROCHLORIDE
     Indication: BONE PAIN
     Dosage: 10 MG, QD
     Route: 030
     Dates: start: 20140920, end: 20140920
  7. MORPHINE HYDROCHLORIDE [Concomitant]
     Active Substance: MORPHINE HYDROCHLORIDE
     Indication: BONE PAIN
     Dosage: 20 MG, QD
     Route: 030
     Dates: start: 20140927, end: 20140927
  8. METOCLOPRAMIDE. [Concomitant]
     Active Substance: METOCLOPRAMIDE
     Indication: ANTIEMETIC SUPPORTIVE CARE
     Dosage: 10 MG, QD
     Route: 030
     Dates: start: 20141006, end: 20141006
  9. ACETAMINOPHEN W/OXYCODONE [Concomitant]
     Active Substance: ACETAMINOPHEN\OXYCODONE HYDROCHLORIDE
     Indication: BONE PAIN
     Dosage: TOTAL DAILY DOSE: 2 TABLETS PRN
     Route: 048
     Dates: start: 201406, end: 20140831
  10. OXYCODONE HYDROCHLORIDE EXTENDED RELEASE [Concomitant]
     Indication: BONE PAIN
     Dosage: 60 MG, QD
     Route: 048
     Dates: start: 20140915, end: 20140916
  11. MORPHINE HYDROCHLORIDE [Concomitant]
     Active Substance: MORPHINE HYDROCHLORIDE
     Indication: BONE PAIN
     Dosage: 20 MG, QD
     Route: 030
     Dates: start: 20140919, end: 20140919
  12. MORPHINE HYDROCHLORIDE [Concomitant]
     Active Substance: MORPHINE HYDROCHLORIDE
     Indication: BONE PAIN
     Dosage: 10 MG, QD
     Route: 030
     Dates: start: 20140922, end: 20140922
  13. MORPHINE HYDROCHLORIDE [Concomitant]
     Active Substance: MORPHINE HYDROCHLORIDE
     Indication: BONE PAIN
     Dosage: 10 MG, QD
     Route: 030
     Dates: start: 20141006, end: 20141006
  14. MORPHINE HYDROCHLORIDE [Concomitant]
     Active Substance: MORPHINE HYDROCHLORIDE
     Indication: BONE PAIN
     Dosage: 20 MG, QD
     Route: 030
     Dates: start: 20141007, end: 20141007
  15. PANTOPRAZOLE [Concomitant]
     Active Substance: PANTOPRAZOLE SODIUM
     Indication: PEPTIC ULCER
     Dosage: UNK
     Route: 048
     Dates: start: 20140907
  16. METOCLOPRAMIDE. [Concomitant]
     Active Substance: METOCLOPRAMIDE
     Indication: ANTIEMETIC SUPPORTIVE CARE
     Dosage: 10 MG, QD
     Route: 030
     Dates: start: 20141002, end: 20141002
  17. MORPHINE HYDROCHLORIDE [Concomitant]
     Active Substance: MORPHINE HYDROCHLORIDE
     Indication: BONE PAIN
     Dosage: 10 MG, QD
     Route: 030
     Dates: start: 20141008, end: 20141008
  18. MORPHINE HYDROCHLORIDE [Concomitant]
     Active Substance: MORPHINE HYDROCHLORIDE
     Indication: BONE PAIN
     Dosage: 20 MG, QD
     Route: 030
     Dates: start: 20141009, end: 20141009
  19. METOCLOPRAMIDE. [Concomitant]
     Active Substance: METOCLOPRAMIDE
     Indication: ANTIEMETIC SUPPORTIVE CARE
     Dosage: 10 MG, QD
     Route: 030
     Dates: start: 20140925, end: 20140925
  20. RADIUM-223 DICHLORIDE [Suspect]
     Active Substance: RADIUM RA-223 DICHLORIDE
     Indication: METASTASES TO BONE
  21. CODEINE [Concomitant]
     Active Substance: CODEINE
     Indication: BONE PAIN
     Dosage: TOTAL DAILY DOSE: 3 TABLETS PRN
     Route: 048
     Dates: start: 201406, end: 20140831
  22. OXYCODONE HYDROCHLORIDE EXTENDED RELEASE [Concomitant]
     Indication: BONE PAIN
     Dosage: 80 MG, QD
     Route: 048
     Dates: start: 20140917
  23. MORPHINE HYDROCHLORIDE [Concomitant]
     Active Substance: MORPHINE HYDROCHLORIDE
     Indication: BONE PAIN
     Dosage: 10 MG, QD
     Route: 030
     Dates: start: 20140915, end: 20140918
  24. MORPHINE HYDROCHLORIDE [Concomitant]
     Active Substance: MORPHINE HYDROCHLORIDE
     Indication: BONE PAIN
     Dosage: 10 MG, QD
     Route: 030
     Dates: start: 20140924, end: 20140924
  25. MORPHINE [Concomitant]
     Active Substance: MORPHINE
     Indication: BONE PAIN
     Dosage: TOTAL DAILY DOSE: 1 TABLET
     Route: 048
     Dates: start: 20140825, end: 20150102
  26. METOCLOPRAMIDE. [Concomitant]
     Active Substance: METOCLOPRAMIDE
     Indication: ANTIEMETIC SUPPORTIVE CARE
     Dosage: 10 MG, QD
     Route: 030
     Dates: start: 20140928, end: 20140928
  27. MORPHINE HYDROCHLORIDE [Concomitant]
     Active Substance: MORPHINE HYDROCHLORIDE
     Indication: BONE PAIN
     Dosage: 10 MG, QD
     Route: 030
     Dates: start: 20141001, end: 20141001

REACTIONS (2)
  - Lung infection [Fatal]
  - Decreased appetite [Not Recovered/Not Resolved]

NARRATIVE: CASE EVENT DATE: 20140915
